FAERS Safety Report 5589314-X (Version None)
Quarter: 2008Q1

REPORT INFORMATION
  Report Type: 
  Country: None (occurrence: None)
  Receive Date: 20080114
  Receipt Date: 20071231
  Transmission Date: 20080703
  Serious: Yes (Other)
  Sender: FDA-Public Use
  Company Number: GB-AVENTIS-200810177EU

PATIENT
  Sex: Female

DRUGS (8)
  1. GENTAMICIN [Suspect]
     Dosage: DOSE: UNK
     Route: 064
  2. METRONIDAZOLE [Suspect]
     Dosage: DOSE: UNK
     Route: 064
  3. PARACETAMOL [Suspect]
     Dosage: DOSE: UNK
     Route: 064
  4. CHLORPHENIRAMINE MALEATE [Suspect]
     Dosage: DOSE: UNK
     Route: 064
  5. MORPHINE [Suspect]
     Dosage: DOSE: UNK
     Route: 064
  6. COMPOUND SODIUM LACTATE [Concomitant]
     Dosage: DOSE: UNK
     Route: 064
  7. CYCLOSPORINE [Concomitant]
     Dosage: DOSE: UNK
     Route: 064
  8. DEXAMETHASONE TAB [Concomitant]
     Dosage: DOSE: UNK
     Route: 064

REACTIONS (2)
  - DRUG EXPOSURE DURING PREGNANCY [None]
  - PREMATURE BABY [None]
